FAERS Safety Report 22925786 (Version 2)
Quarter: 2023Q4

REPORT INFORMATION
  Report Type: Spontaneous
  Country: CH (occurrence: CH)
  Receive Date: 20230908
  Receipt Date: 20231102
  Transmission Date: 20240109
  Serious: Yes (Other)
  Sender: FDA-Public Use
  Company Number: CH-TEVA-2023-CH-2924402

PATIENT
  Sex: Male

DRUGS (5)
  1. CARBOPLATIN [Suspect]
     Active Substance: CARBOPLATIN
     Indication: Oesophageal adenocarcinoma
     Dosage: 2 CYCLES
     Route: 065
     Dates: start: 20171117, end: 20171208
  2. CARBOPLATIN [Suspect]
     Active Substance: CARBOPLATIN
     Indication: Brain cancer metastatic
     Dosage: WEEKLY
     Dates: start: 20180102, end: 20180802
  3. DEXAMETHASONE [Suspect]
     Active Substance: DEXAMETHASONE
     Indication: Neoplasm prophylaxis
     Route: 065
     Dates: start: 20230428, end: 20230504
  4. TAXOL [Suspect]
     Active Substance: PACLITAXEL
     Indication: Oesophageal adenocarcinoma
     Dosage: 2 CYCLES
     Route: 065
     Dates: start: 20171117, end: 20171208
  5. TAXOL [Suspect]
     Active Substance: PACLITAXEL
     Indication: Brain cancer metastatic
     Dosage: WEEKLY
     Dates: start: 20180102, end: 20180802

REACTIONS (4)
  - Diaphragmatic hernia [Unknown]
  - Haemorrhagic tumour necrosis [Unknown]
  - Paratracheal lymphadenopathy [Unknown]
  - Lymphadenopathy [Unknown]
